FAERS Safety Report 4880367-0 (Version None)
Quarter: 2006Q1

REPORT INFORMATION
  Report Type: 
  Country: None (occurrence: None)
  Receive Date: 20060111
  Receipt Date: 20051230
  Transmission Date: 20060701
  Serious: Yes (Hospitalization)
  Sender: FDA-Public Use
  Company Number: 200511634BWH

PATIENT
  Age: 57 Year
  Sex: Male
  Weight: 123.2877 kg

DRUGS (18)
  1. SORAFENIB [Suspect]
     Indication: METASTATIC MALIGNANT MELANOMA
     Dosage: SEE IMAGE
     Route: 048
     Dates: start: 20050713, end: 20050810
  2. SORAFENIB [Suspect]
     Indication: METASTATIC MALIGNANT MELANOMA
     Dosage: SEE IMAGE
     Route: 048
     Dates: start: 20050812, end: 20051228
  3. DTIC-DOME [Suspect]
     Dosage: 2410 MG, TOTAL DAILY, INTRAVENOUS
     Route: 042
     Dates: start: 20050713, end: 20051228
  4. PROLEUKIN [Concomitant]
  5. ATENOLOL [Concomitant]
  6. LISINOPRIL [Concomitant]
  7. LOTREL [Concomitant]
  8. ACIPHEX [Concomitant]
  9. GLUCOSAMINE [Concomitant]
  10. ATIVAN [Concomitant]
  11. ZOFRAN [Concomitant]
  12. COMPAZINE [Concomitant]
  13. INDOCIN [Concomitant]
  14. LOMOTIL [Concomitant]
  15. ACETAMINOPHEN [Concomitant]
  16. LOPRESSOR [Concomitant]
  17. NORVASC [Concomitant]
  18. DOCUSATE SODIUM [Concomitant]

REACTIONS (18)
  - BLOOD LACTATE DEHYDROGENASE INCREASED [None]
  - CHILLS [None]
  - DRUG EFFECT DECREASED [None]
  - FLUSHING [None]
  - HAEMATOCRIT DECREASED [None]
  - HEADACHE [None]
  - HYPERTENSION [None]
  - HYPOTENSION [None]
  - INFECTION [None]
  - LYMPHOCYTE PERCENTAGE DECREASED [None]
  - NAUSEA [None]
  - NEUTROPHIL PERCENTAGE INCREASED [None]
  - PALLOR [None]
  - PYREXIA [None]
  - RED CELL DISTRIBUTION WIDTH INCREASED [None]
  - TACHYCARDIA [None]
  - URINARY RETENTION [None]
  - VISION BLURRED [None]
